FAERS Safety Report 9586402 (Version 1)
Quarter: 2013Q4

REPORT INFORMATION
  Report Type: Spontaneous
  Country: FR (occurrence: FR)
  Receive Date: 20131003
  Receipt Date: 20131003
  Transmission Date: 20140711
  Serious: Yes (Hospitalization)
  Sender: FDA-Public Use
  Company Number: FR-ASTRAZENECA-2013SE72343

PATIENT
  Age: 11342 Day
  Sex: Female

DRUGS (5)
  1. ENTOCORT [Suspect]
     Indication: CROHN^S DISEASE
     Route: 048
     Dates: start: 201303, end: 20130820
  2. SEROPLEX [Suspect]
     Route: 048
  3. IMUREL [Suspect]
     Indication: CROHN^S DISEASE
     Route: 048
     Dates: start: 20130801, end: 20130815
  4. PENTASA [Suspect]
     Indication: CROHN^S DISEASE
     Route: 048
     Dates: start: 201303
  5. BIPROFENID [Suspect]
     Indication: BACK PAIN
     Route: 048
     Dates: start: 20130811, end: 20130812

REACTIONS (4)
  - Pancreatitis acute [Recovered/Resolved]
  - Hypoalbuminaemia [Unknown]
  - Hypogammaglobulinaemia [Unknown]
  - Thrombocytosis [Unknown]
